FAERS Safety Report 22635597 (Version 1)
Quarter: 2023Q2

REPORT INFORMATION
  Report Type: Spontaneous
  Country: US (occurrence: US)
  Receive Date: 20230623
  Receipt Date: 20230623
  Transmission Date: 20230721
  Serious: Yes (Death, Hospitalization, Other)
  Sender: FDA-Public Use
  Company Number: US-FreseniusKabi-FK202309318

PATIENT
  Age: 69 Year
  Sex: Male

DRUGS (4)
  1. METHOTREXATE [Suspect]
     Active Substance: METHOTREXATE
     Indication: B-cell type acute leukaemia
     Dosage: THREE CYCLE
     Route: 037
  2. DASATINIB [Concomitant]
     Active Substance: DASATINIB
     Indication: B-cell type acute leukaemia
     Route: 048
  3. VINCRISTINE [Concomitant]
     Active Substance: VINCRISTINE
     Indication: B-cell type acute leukaemia
     Dosage: TWO CYCLE
  4. DEXAMETHASONE [Concomitant]
     Active Substance: DEXAMETHASONE
     Indication: B-cell type acute leukaemia
     Dosage: DEXAMETHASONE 40 MG DAILY (GIVEN AS 10 MG INTRAVENOUSLY EVERY 6 HOURS) FOR TWO DAYS EACH WEEKLY CYCL
     Route: 042

REACTIONS (2)
  - Subdural hygroma [Fatal]
  - Cerebral mass effect [Fatal]
